FAERS Safety Report 7797660-4 (Version None)
Quarter: 2011Q4

REPORT INFORMATION
  Report Type: 
  Country: None (occurrence: None)
  Receive Date: 20111004
  Receipt Date: 20111004
  Transmission Date: 20120403
  Serious: Yes (Life-Threatening, Hospitalization, Other)
  Sender: FDA-Public Use
  Company Number: None

PATIENT
  Sex: Female
  Weight: 46.8 kg

DRUGS (1)
  1. BOTOX COSMETIC [Suspect]
     Indication: SKIN COSMETIC PROCEDURE
     Dosage: 24 UNITS ONCE INJECTION
     Dates: start: 20101207

REACTIONS (18)
  - CHILLS [None]
  - PHARYNGEAL DISORDER [None]
  - MUSCLE TWITCHING [None]
  - URTICARIA [None]
  - INFLUENZA LIKE ILLNESS [None]
  - MUSCLE SPASMS [None]
  - TOOTHACHE [None]
  - PRURITUS [None]
  - FEELING ABNORMAL [None]
  - ANXIETY [None]
  - DYSPHAGIA [None]
  - VISION BLURRED [None]
  - PARAESTHESIA [None]
  - DYSPNOEA [None]
  - NEURALGIA [None]
  - RASH [None]
  - ABDOMINAL PAIN UPPER [None]
  - ANAPHYLACTIC SHOCK [None]
